FAERS Safety Report 6382205-6 (Version None)
Quarter: 2009Q3

REPORT INFORMATION
  Report Type: 
  Country: None (occurrence: None)
  Receive Date: 20090929
  Receipt Date: 20090929
  Transmission Date: 20100115
  Serious: Yes (Other)
  Sender: FDA-Public Use
  Company Number: None

PATIENT
  Sex: Female
  Weight: 65.7716 kg

DRUGS (1)
  1. TIMOLOL 0.25% FALCON [Suspect]
     Indication: CATARACT
     Dosage: 1 DROPS TWICE A DAY
     Dates: start: 20090727, end: 20090814

REACTIONS (3)
  - EYE SWELLING [None]
  - RASH [None]
  - RASH PRURITIC [None]
